FAERS Safety Report 7337911-3 (Version None)
Quarter: 2011Q1

REPORT INFORMATION
  Report Type: 
  Country: None (occurrence: None)
  Receive Date: 20110308
  Receipt Date: 20110301
  Transmission Date: 20110831
  Serious: Yes (Other)
  Sender: FDA-Public Use
  Company Number: GB-ROCHE-763049

PATIENT
  Sex: Male
  Weight: 111 kg

DRUGS (8)
  1. LANSOPRAZOLE [Concomitant]
     Route: 048
     Dates: start: 20100801
  2. CISPLATIN [Suspect]
     Dosage: DATE OF MOST RECENT DOSE ADMINISTRATION: 09 SEPTEMBER 2010
     Route: 042
     Dates: start: 20100909
  3. BEVACIZUMAB [Suspect]
     Dosage: DATE OF MOST RECENT DOSE ADMINISTRATION: 05 OCTOBER 2010
     Route: 042
     Dates: start: 20100909
  4. EPIRUBICIN [Suspect]
     Dosage: DATE OF MOST RECENT DOSE ADMINISTRATION: 05 OCTOBER 2010
     Route: 042
     Dates: start: 20100909
  5. LISINOPRIL [Concomitant]
     Route: 048
     Dates: start: 20100907
  6. CAPECITABINE [Suspect]
     Dosage: DATE OF MOST RECENT DOSE ADMINISTRATION: 19 OCTOBER 2010
     Route: 048
     Dates: start: 20100909
  7. SIMVASTATIN [Concomitant]
     Route: 048
     Dates: start: 20090101
  8. SERTRALINE HYDROCHLORIDE [Concomitant]
     Route: 048
     Dates: start: 20090101

REACTIONS (1)
  - IMPAIRED HEALING [None]
